FAERS Safety Report 9832018 (Version 2)
Quarter: 2014Q1

REPORT INFORMATION
  Report Type: Spontaneous
  Country: US (occurrence: US)
  Receive Date: 20140121
  Receipt Date: 20140121
  Transmission Date: 20141002
  Serious: Yes (Disabling)
  Sender: FDA-Public Use
  Company Number: US-GE HEALTHCARE MEDICAL DIAGNOSTICS-OSCN-PR-0805S-0278

PATIENT
  Age: 53 Year
  Sex: Male

DRUGS (3)
  1. OMNISCAN [Suspect]
     Indication: ARTERIOVENOUS FISTULA OCCLUSION
     Route: 042
     Dates: start: 20050502, end: 20050502
  2. LISINOPRIL [Concomitant]
  3. EPOGEN [Concomitant]

REACTIONS (1)
  - Nephrogenic systemic fibrosis [Not Recovered/Not Resolved]
